FAERS Safety Report 6542824-0 (Version None)
Quarter: 2010Q1

REPORT INFORMATION
  Report Type: 
  Country: None (occurrence: None)
  Receive Date: 20100114
  Receipt Date: 20090420
  Transmission Date: 20100710
  Serious: Yes (Death)
  Sender: FDA-Public Use
  Company Number: 003859

PATIENT

DRUGS (2)
  1. PREDNISOLONE [Suspect]
     Indication: INFANTILE SPASMS
     Dosage: (MAX DAILY DOSE 60 MG ORAL) ; (FROM DAY 15 TO DAY 30 AFTER RANDOMISATION REDUCING EVERY 5 DAYS ORAL)
     Route: 048
  2. VIGABATRIN [Concomitant]

REACTIONS (1)
  - STAPHYLOCOCCAL SEPSIS [None]
